FAERS Safety Report 10994133 (Version 1)
Quarter: 2015Q2

REPORT INFORMATION
  Report Type: Spontaneous
  Country: BR (occurrence: BR)
  Receive Date: 20150407
  Receipt Date: 20150407
  Transmission Date: 20150821
  Serious: Yes (Hospitalization)
  Sender: FDA-Public Use
  Company Number: BR-SA-2015SA042994

PATIENT
  Age: 67 Year
  Sex: Female
  Weight: 90 kg

DRUGS (4)
  1. CLIKSTAR [Concomitant]
     Active Substance: CLIKSTAR
     Indication: DEVICE THERAPY
     Dates: start: 2014
  2. GALVUS [Concomitant]
     Active Substance: VILDAGLIPTIN
     Indication: TYPE 2 DIABETES MELLITUS
     Dates: start: 2010
  3. LANTUS [Suspect]
     Active Substance: INSULIN GLARGINE
     Indication: TYPE 2 DIABETES MELLITUS
     Dosage: LANTUS (INSULIN GLARGINE) 3 ML?CARTRIDGE
     Route: 065
     Dates: start: 2012
  4. NOVORAPID [Concomitant]
     Active Substance: INSULIN ASPART
     Indication: TYPE 2 DIABETES MELLITUS
     Dates: start: 2010

REACTIONS (2)
  - Hypertension [Unknown]
  - Knee arthroplasty [Unknown]

NARRATIVE: CASE EVENT DATE: 2013
